FAERS Safety Report 9740097 (Version 1)
Quarter: 2013Q4

REPORT INFORMATION
  Report Type: Spontaneous
  Country: IT (occurrence: IT)
  Receive Date: 20131209
  Receipt Date: 20131209
  Transmission Date: 20140711
  Serious: Yes (Death)
  Sender: FDA-Public Use
  Company Number: IT-ELI_LILLY_AND_COMPANY-IT201312001552

PATIENT
  Sex: 0

DRUGS (3)
  1. PEMETREXED [Suspect]
     Indication: PLEURAL MESOTHELIOMA MALIGNANT
     Dosage: 500 MG/M2, OTHER
     Route: 042
  2. CARBOPLATIN [Suspect]
     Indication: PLEURAL MESOTHELIOMA MALIGNANT
     Dosage: UNK UNK, OTHER
     Route: 042
  3. BEVACIZUMAB [Suspect]
     Indication: PLEURAL MESOTHELIOMA MALIGNANT
     Dosage: 15 MG/KG, OTHER
     Route: 042

REACTIONS (1)
  - Intestinal perforation [Fatal]
